FAERS Safety Report 23056198 (Version 1)
Quarter: 2023Q4

REPORT INFORMATION
  Report Type: Spontaneous
  Country: IL (occurrence: IL)
  Receive Date: 20231011
  Receipt Date: 20231011
  Transmission Date: 20240109
  Serious: Yes (Hospitalization)
  Sender: FDA-Public Use
  Company Number: IL-002147023-NVSC2023IL187605

PATIENT

DRUGS (11)
  1. RUXOLITINIB [Suspect]
     Active Substance: RUXOLITINIB
     Indication: Myelofibrosis
     Dosage: 10 MG, BID
     Route: 065
     Dates: start: 20220207
  2. LANTON [Concomitant]
     Indication: Diaphragmatic hernia
     Dosage: 30 MG, QD
     Route: 065
     Dates: start: 2018
  3. FOLIC ACID [Concomitant]
     Active Substance: FOLIC ACID
     Indication: Vitamin supplementation
     Dosage: 5 MG, QD
     Route: 065
     Dates: start: 20210419
  4. ATACAND [Concomitant]
     Active Substance: CANDESARTAN CILEXETIL
     Indication: Hypertension
     Dosage: 8 MG, QD
     Route: 065
     Dates: start: 2010
  5. ASPIRIN [Concomitant]
     Active Substance: ASPIRIN
     Indication: Thrombosis prophylaxis
     Dosage: 100 MG, QD
     Route: 065
     Dates: start: 20210419
  6. ASPIRIN [Concomitant]
     Active Substance: ASPIRIN
     Indication: Urinary tract infection
  7. DURATEARS [PARAFFIN, LIQUID;WHITE SOFT PARAFFIN;WOOL FAT] [Concomitant]
     Indication: Sjogren^s syndrome
     Dosage: 1 DRP, QD (BOTH EYES)
     Route: 065
     Dates: start: 1990
  8. HYALURONATE SODIUM [Concomitant]
     Active Substance: HYALURONATE SODIUM
     Indication: Sjogren^s syndrome
     Dosage: 1 GTT, FREQUENCY: SOS
     Route: 065
     Dates: start: 1990
  9. ISONIAZID [Concomitant]
     Active Substance: ISONIAZID
     Indication: Latent tuberculosis
     Dosage: 300 MG, QD
     Route: 065
     Dates: start: 20220303
  10. STATOR [ATORVASTATIN CALCIUM] [Concomitant]
     Indication: Hyperlipidaemia
     Dosage: 5 MG, QW
     Route: 065
     Dates: start: 20220502
  11. STATOR [ATORVASTATIN CALCIUM] [Concomitant]
     Indication: Prophylaxis

REACTIONS (3)
  - Acute kidney injury [Unknown]
  - Prostatitis [Recovered/Resolved]
  - Urinary tract infection [Unknown]

NARRATIVE: CASE EVENT DATE: 20230404
